FAERS Safety Report 8970811 (Version 1)
Quarter: 2012Q4

REPORT INFORMATION
  Report Type: 
  Country: US (occurrence: US)
  Receive Date: 20121218
  Receipt Date: 20121218
  Transmission Date: 20130627
  Serious: Yes (Other)
  Sender: FDA-Public Use
  Company Number: US-ELI_LILLY_AND_COMPANY-US201212004718

PATIENT
  Age: 48 Year
  Sex: Male

DRUGS (2)
  1. CIALIS [Suspect]
     Indication: ERECTILE DYSFUNCTION
     Dosage: 5 mg, UNK
  2. CIALIS [Suspect]
     Dosage: UNK, prn

REACTIONS (4)
  - Intervertebral disc protrusion [Unknown]
  - Exostosis [Unknown]
  - Neck injury [Unknown]
  - Headache [Not Recovered/Not Resolved]
